FAERS Safety Report 9923575 (Version 2)
Quarter: 2014Q1

REPORT INFORMATION
  Report Type: Report from Study
  Country: JP (occurrence: JP)
  Receive Date: 20140225
  Receipt Date: 20140310
  Transmission Date: 20141002
  Serious: Yes (Death)
  Sender: FDA-Public Use
  Company Number: JP-009507513-1402JPN010424

PATIENT
  Age: 79 Year
  Sex: Female
  Weight: 60 kg

DRUGS (27)
  1. CANCIDAS FOR INTRAVENOUS DRIP INFUSION 50MG [Suspect]
     Indication: FEBRILE NEUTROPENIA
     Dosage: 50 MG, QD
     Route: 041
     Dates: start: 20130413, end: 20130415
  2. CANCIDAS FOR INTRAVENOUS DRIP INFUSION 70MG [Suspect]
     Indication: NEUTROPENIA
     Dosage: 70 MG, QD
     Route: 041
     Dates: start: 20130412, end: 20130412
  3. ITRACONAZOLE [Concomitant]
     Indication: FEBRILE NEUTROPENIA
     Dosage: DIVIDED DOSE FREQUENCY UNKNOWN
     Route: 048
     Dates: start: 20130403, end: 20130413
  4. LASIX (FUROSEMIDE) [Concomitant]
     Indication: HYPERTENSION
     Dosage: 20 MG, QD
     Route: 048
     Dates: end: 20130415
  5. ALDACTONE A [Concomitant]
     Indication: HYPERTENSION
     Dosage: 25 MG, QD
     Route: 048
     Dates: end: 20130415
  6. EVISTA [Concomitant]
     Indication: OSTEOPOROSIS
     Dosage: 60 MG, QD
     Route: 048
     Dates: end: 20130415
  7. HYPEN [Concomitant]
     Indication: OSTEOARTHRITIS
     Dosage: 200 MG, BID
     Route: 048
     Dates: end: 20130415
  8. GASLON [Concomitant]
     Dosage: 2 DF, QD
     Route: 048
     Dates: end: 20130415
  9. CRESTOR [Concomitant]
     Indication: LIPID METABOLISM DISORDER
     Dosage: 2.5 MG, QD
     Route: 048
     Dates: end: 20130415
  10. CARNACULIN [Concomitant]
     Indication: ARTERIOSCLEROSIS
     Dosage: 25 MICROGRAM, TID
     Route: 048
  11. PRIMPERAN [Concomitant]
     Indication: VOMITING
     Dosage: 5 MG, TID
     Route: 048
     Dates: start: 20130403, end: 20130415
  12. ITRIZOLE [Concomitant]
     Indication: INFECTION PROPHYLAXIS
     Dosage: 20 ML, QD
     Route: 048
     Dates: start: 20130403, end: 20130415
  13. PARIET [Concomitant]
     Indication: GASTRIC ULCER
     Dosage: 10 MG, UNK
     Route: 048
     Dates: start: 20130403, end: 20130415
  14. FEBURIC [Concomitant]
     Indication: PROPHYLAXIS
     Dosage: 10 MG, QD
     Route: 048
     Dates: start: 20130403, end: 20130415
  15. BAKTAR [Concomitant]
     Indication: PNEUMONIA
     Dosage: 2 DF, QD
     Route: 048
     Dates: start: 20130412, end: 20130415
  16. MEROPENEM [Concomitant]
     Indication: PNEUMONIA
     Dosage: 0.5 G, TID
     Route: 051
     Dates: start: 20130410, end: 20130414
  17. CYLOCIDE [Concomitant]
     Indication: ACUTE MYELOID LEUKAEMIA
     Dosage: 15 MG, BID
     Route: 051
     Dates: start: 20130403, end: 20130413
  18. ORGARAN INTRAVENOUS 1250 UNITS [Concomitant]
     Indication: DISSEMINATED INTRAVASCULAR COAGULATION
     Dosage: 2 DF, QD
     Route: 051
     Dates: start: 20130412, end: 20130415
  19. ZITHROMAC [Concomitant]
     Indication: PNEUMONIA
     Dosage: 500 MG, QD
     Route: 051
     Dates: start: 20130411, end: 20130413
  20. VANCOMYCIN [Concomitant]
     Indication: PNEUMONIA
     Dosage: 3.5 DF, QD
     Route: 051
     Dates: start: 20130413, end: 20130415
  21. FINIBAX [Concomitant]
     Indication: PNEUMONIA
     Dosage: 3 G, TID
     Route: 051
     Dates: start: 20130413, end: 20130415
  22. DENOSINE [Concomitant]
     Indication: PNEUMONIA
     Dosage: 300 MG, QD
     Route: 051
     Dates: start: 20130415, end: 20130415
  23. METHYLPREDNISOLONE SODIUM SUCCINATE [Concomitant]
     Indication: PNEUMONIA
     Dosage: 500 MG, QD
     Route: 051
     Dates: start: 20130414, end: 20130416
  24. PASIL [Concomitant]
     Indication: PNEUMONIA
     Dosage: 1 G, QD
     Route: 051
     Dates: start: 20130415, end: 20130415
  25. SEFIROM [Concomitant]
     Indication: PNEUMONIA
     Dosage: 2 G, BID
     Route: 051
     Dates: start: 20130415, end: 20130415
  26. VFEND [Concomitant]
     Indication: FEBRILE NEUTROPENIA
     Dosage: 300 MG, BID
     Route: 048
     Dates: start: 20130415, end: 20130415
  27. ALBUMIN HUMAN [Concomitant]
     Indication: HYPOALBUMINAEMIA
     Dosage: 12.5 G, QD
     Route: 051
     Dates: start: 20130414, end: 20130415

REACTIONS (4)
  - Acute myeloid leukaemia [Fatal]
  - Febrile neutropenia [Fatal]
  - Cardiac failure [Fatal]
  - Pneumonia [Fatal]
